FAERS Safety Report 4331219-6 (Version None)
Quarter: 2004Q1

REPORT INFORMATION
  Report Type: 
  Country: None (occurrence: None)
  Receive Date: 20040331
  Receipt Date: 20040316
  Transmission Date: 20041129
  Serious: Yes (Death, Hospitalization)
  Sender: FDA-Public Use
  Company Number: 02P-028-0198360-01

PATIENT
  Age: 62 Year
  Sex: Female
  Weight: 64.5 kg

DRUGS (10)
  1. HUMIRA [Suspect]
     Indication: RHEUMATOID ARTHRITIS
     Dosage: 1 IN 2 WK, SUBCUTANEOUS
     Route: 058
     Dates: start: 20010717, end: 20020729
  2. METHOTREXATE [Concomitant]
  3. GLUCOSAMINE [Concomitant]
  4. ESTRADIOL [Concomitant]
  5. C ENTRUM [Concomitant]
  6. CALCIUM CARBONATE [Concomitant]
  7. ERGOCALCIFEROL [Concomitant]
  8. FOLIC ACID [Concomitant]
  9. ASCORBIC ACID [Concomitant]
  10. ROFECOXIB [Concomitant]

REACTIONS (14)
  - ABDOMINAL DISTENSION [None]
  - ABDOMINAL PAIN [None]
  - ADENOCARCINOMA [None]
  - ALANINE AMINOTRANSFERASE INCREASED [None]
  - BLOOD ALBUMIN DECREASED [None]
  - BLOOD ALKALINE PHOSPHATASE INCREASED [None]
  - INTESTINAL OBSTRUCTION [None]
  - MALAISE [None]
  - MALIGNANT ASCITES [None]
  - METASTATIC NEOPLASM [None]
  - OEDEMA PERIPHERAL [None]
  - OVARIAN CANCER [None]
  - PLEURAL EFFUSION [None]
  - PULMONARY EMBOLISM [None]
